FAERS Safety Report 6062751-5 (Version None)
Quarter: 2009Q1

REPORT INFORMATION
  Report Type: 
  Country: None (occurrence: None)
  Receive Date: 20090202
  Receipt Date: 20090202
  Transmission Date: 20090719
  Serious: Yes (Hospitalization)
  Sender: FDA-Public Use
  Company Number: None

PATIENT
  Sex: Male
  Weight: 35 kg

DRUGS (1)
  1. PEGASPARGASE [Suspect]
     Indication: T-CELL TYPE ACUTE LEUKAEMIA
     Dosage: 3,000 UNITES X3 IM
     Route: 030
     Dates: start: 20081008, end: 20090110

REACTIONS (8)
  - ANGIOEDEMA [None]
  - ANXIETY [None]
  - HYPERSENSITIVITY [None]
  - LIP SWELLING [None]
  - PRURITUS GENERALISED [None]
  - RESPIRATORY DISTRESS [None]
  - URTICARIA [None]
  - VOMITING [None]
